FAERS Safety Report 8578945-0 (Version None)
Quarter: 2012Q3

REPORT INFORMATION
  Report Type: 
  Country: None (occurrence: None)
  Receive Date: 20120808
  Receipt Date: 20120731
  Transmission Date: 20120928
  Serious: Yes (Other)
  Sender: FDA-Public Use
  Company Number: IT-JNJFOC-20120803271

PATIENT

DRUGS (3)
  1. ISENTRESS [Suspect]
     Indication: HIV INFECTION
     Route: 065
  2. RITONAVIR [Suspect]
     Indication: HIV INFECTION
     Route: 065
  3. DARUNAVIR ETHANOLATE [Suspect]
     Indication: HIV INFECTION
     Route: 048

REACTIONS (1)
  - NEUROPATHY PERIPHERAL [None]
